FAERS Safety Report 20237597 (Version 6)
Quarter: 2023Q4

REPORT INFORMATION
  Report Type: Spontaneous
  Country: US (occurrence: US)
  Receive Date: 20211228
  Receipt Date: 20231004
  Transmission Date: 20240110
  Serious: Yes (Hospitalization, Other)
  Sender: FDA-Public Use
  Company Number: US-ALXN-A202114199

PATIENT
  Age: 3 Year
  Sex: Female
  Weight: 9.4 kg

DRUGS (8)
  1. STRENSIQ [Suspect]
     Active Substance: ASFOTASE ALFA
     Indication: Hypophosphatasia
     Dosage: 1 MG/KG, SIX TIMES/WEEK
     Route: 058
     Dates: start: 20200811
  2. STRENSIQ [Suspect]
     Active Substance: ASFOTASE ALFA
     Dosage: 6 MG/KG, UNK
     Route: 065
  3. STRENSIQ [Suspect]
     Active Substance: ASFOTASE ALFA
     Dosage: 9 MG/KG, SIX TIMES/WEEK
     Route: 058
  4. FERROUS SULPHATE                   /00023503/ [Concomitant]
     Indication: Product used for unknown indication
     Dosage: 15 MG IRON (75 MG/ML), UNK
     Route: 065
  5. IRON [Concomitant]
     Active Substance: IRON
     Indication: Anaemia
     Dosage: 3 ML, (45 MG OF IRON ) ONE TIME EACH DAY
     Route: 048
  6. PREVACID [Concomitant]
     Active Substance: LANSOPRAZOLE
     Indication: Reflux gastritis
     Dosage: 7.5 MG, QD
     Route: 048
  7. ZOFRAN [Concomitant]
     Active Substance: ONDANSETRON HYDROCHLORIDE
     Indication: Nausea
     Dosage: 2.5 ML, Q8H
  8. ZOFRAN [Concomitant]
     Active Substance: ONDANSETRON HYDROCHLORIDE
     Indication: Vomiting

REACTIONS (7)
  - Hypercalcaemia [Not Recovered/Not Resolved]
  - Hyperphosphataemia [Recovered/Resolved]
  - Hyponatraemia [Recovering/Resolving]
  - Hyperkalaemia [Recovering/Resolving]
  - Weight decreased [Not Recovered/Not Resolved]
  - End stage renal disease [Unknown]
  - Seizure [Unknown]

NARRATIVE: CASE EVENT DATE: 20211221
